FAERS Safety Report 22023992 (Version 2)
Quarter: 2023Q1

REPORT INFORMATION
  Report Type: Spontaneous
  Country: US (occurrence: US)
  Receive Date: 20230223
  Receipt Date: 20230323
  Transmission Date: 20230417
  Serious: Yes (Hospitalization, Other)
  Sender: FDA-Public Use
  Company Number: US-JNJFOC-20230235188

PATIENT
  Age: 76 Year
  Sex: Female
  Weight: 50.3 kg

DRUGS (7)
  1. XARELTO [Suspect]
     Active Substance: RIVAROXABAN
     Indication: Product used for unknown indication
     Route: 048
  2. TYVASO [Suspect]
     Active Substance: TREPROSTINIL
     Indication: Pulmonary arterial hypertension
     Dosage: START DATE: 19/DEC/2022
     Route: 065
  3. INFLUENZA VIRUS VACCINE [Suspect]
     Active Substance: INFLUENZA VIRUS VACCINE
     Indication: Influenza
     Dosage: START DATE: 18/OCT/2022
     Route: 065
  4. IRON [Suspect]
     Active Substance: IRON
     Indication: Product used for unknown indication
     Route: 065
  5. ELIQUIS [Suspect]
     Active Substance: APIXABAN
     Indication: Product used for unknown indication
     Route: 065
  6. ADEMPAS [Concomitant]
     Active Substance: RIOCIGUAT
  7. OPSUMIT [Concomitant]
     Active Substance: MACITENTAN

REACTIONS (14)
  - Crohn^s disease [Unknown]
  - Transfusion [Unknown]
  - Drug hypersensitivity [Unknown]
  - Epistaxis [Unknown]
  - COVID-19 [Unknown]
  - Pruritus [Unknown]
  - Drug intolerance [Unknown]
  - Scratch [Unknown]
  - Cough [Not Recovered/Not Resolved]
  - Dyspnoea [Not Recovered/Not Resolved]
  - Respiratory syncytial virus infection [Unknown]
  - Memory impairment [Unknown]
  - Circadian rhythm sleep disorder [Unknown]
  - Gastrointestinal stoma complication [Unknown]

NARRATIVE: CASE EVENT DATE: 20210101
